FAERS Safety Report 13587913 (Version 1)
Quarter: 2017Q2

REPORT INFORMATION
  Report Type: Spontaneous
  Country: JP (occurrence: JP)
  Receive Date: 20170527
  Receipt Date: 20170527
  Transmission Date: 20170830
  Serious: Yes (Life-Threatening, Hospitalization, Other)
  Sender: FDA-Public Use
  Company Number: JP-ACCORD-051698

PATIENT
  Age: 13 Year
  Sex: Female

DRUGS (3)
  1. CISPLATIN. [Suspect]
     Active Substance: CISPLATIN
     Indication: OVARIAN GERM CELL ENDODERMAL SINUS TUMOUR STAGE IV
     Dosage: HALF OF THE NORMAL DOSE
  2. BLEOMYCIN [Suspect]
     Active Substance: BLEOMYCIN SULFATE
     Indication: OVARIAN GERM CELL ENDODERMAL SINUS TUMOUR STAGE IV
     Dosage: HALF OF THE NORMAL DOSE
  3. ETOPOSIDE. [Suspect]
     Active Substance: ETOPOSIDE
     Indication: OVARIAN GERM CELL ENDODERMAL SINUS TUMOUR STAGE IV
     Dosage: HALF OF THE NORMAL DOSE

REACTIONS (2)
  - Hepatic function abnormal [Unknown]
  - Disease progression [Unknown]
